FAERS Safety Report 20347244 (Version 1)
Quarter: 2022Q1

REPORT INFORMATION
  Report Type: Report from Study
  Country: IT (occurrence: IT)
  Receive Date: 20220118
  Receipt Date: 20220118
  Transmission Date: 20220424
  Serious: Yes (Life-Threatening, Hospitalization, Other)
  Sender: FDA-Public Use
  Company Number: None

PATIENT
  Age: 23 Year
  Sex: Male

DRUGS (1)
  1. KETOPROFEN [Suspect]
     Active Substance: KETOPROFEN
     Indication: Back pain
     Dosage: 80 MILLIGRAM, ONCE
     Route: 048
     Dates: start: 20211206, end: 20211206

REACTIONS (1)
  - Anaphylactic shock [Recovering/Resolving]

NARRATIVE: CASE EVENT DATE: 20211206
